FAERS Safety Report 25448095 (Version 1)
Quarter: 2025Q2

REPORT INFORMATION
  Report Type: Spontaneous
  Country: SE (occurrence: SE)
  Receive Date: 20250617
  Receipt Date: 20250617
  Transmission Date: 20250717
  Serious: Yes (Other)
  Sender: ELI LILLY AND COMPANY
  Company Number: SE-ELI_LILLY_AND_COMPANY-SE202506011403

PATIENT
  Sex: Male

DRUGS (1)
  1. MOUNJARO [Suspect]
     Active Substance: TIRZEPATIDE
     Indication: Weight control
     Route: 065

REACTIONS (4)
  - Cardiac failure [Unknown]
  - Cardiac flutter [Unknown]
  - Full blood count abnormal [Unknown]
  - Incorrect dose administered [Unknown]
